FAERS Safety Report 19231269 (Version 1)
Quarter: 2021Q2

REPORT INFORMATION
  Report Type: Spontaneous
  Country: PT (occurrence: PT)
  Receive Date: 20210507
  Receipt Date: 20210507
  Transmission Date: 20210717
  Serious: Yes (Other)
  Sender: FDA-Public Use
  Company Number: PT-BAXTER-2021BAX009939

PATIENT

DRUGS (2)
  1. ?GUA PARA INJECT?VEIS PH. EUR. [Suspect]
     Active Substance: WATER
     Indication: MEDICATION DILUTION
     Dosage: ROUTE: PERIPHERAL VEIN
     Route: 042
  2. NUMETA G13%E [Suspect]
     Active Substance: AMINO ACIDS\CARBOHYDRATES\ELECTROLYTES NOS\VITAMINS
     Indication: PRODUCT USED FOR UNKNOWN INDICATION
     Dosage: ROUTE: PERIPHERAL VEIN
     Route: 042

REACTIONS (2)
  - Dose calculation error [Unknown]
  - Extravasation [Unknown]
